FAERS Safety Report 8300102 (Version 2)
Quarter: 2012Q4

REPORT INFORMATION
  Report Type: 
  Country: US (occurrence: US)
  Receive Date: 20111219
  Receipt Date: 20121104
  Transmission Date: 20130627
  Serious: No
  Sender: FDA-Public Use
  Company Number: US-ASTRAZENECA-2011SE16321

PATIENT
  Age: 65 Year
  Sex: Female

DRUGS (1)
  1. CRESTOR [Suspect]
     Route: 048

REACTIONS (6)
  - Diabetes mellitus [Unknown]
  - Fall [Unknown]
  - Ligament sprain [Unknown]
  - Joint dislocation [Unknown]
  - Joint swelling [Unknown]
  - Balance disorder [Unknown]
